FAERS Safety Report 16568618 (Version 1)
Quarter: 2019Q3

REPORT INFORMATION
  Report Type: Spontaneous
  Country: US (occurrence: US)
  Receive Date: 20190712
  Receipt Date: 20190712
  Transmission Date: 20191004
  Serious: No
  Sender: FDA-Public Use
  Company Number: US-AMGEN-USASP2019109224

PATIENT
  Age: 73 Year
  Sex: Female

DRUGS (1)
  1. PROLIA [Suspect]
     Active Substance: DENOSUMAB
     Indication: OSTEOPOROSIS POSTMENOPAUSAL
     Dosage: 60 MILLIGRAM
     Route: 065
     Dates: start: 20190628

REACTIONS (7)
  - Nasal discomfort [Unknown]
  - Swelling face [Unknown]
  - Dry skin [Unknown]
  - Lip swelling [Unknown]
  - Throat irritation [Unknown]
  - Erythema [Unknown]
  - Lip pain [Unknown]

NARRATIVE: CASE EVENT DATE: 20190704
